FAERS Safety Report 6889831-6 (Version None)
Quarter: 2010Q3

REPORT INFORMATION
  Report Type: 
  Country: None (occurrence: None)
  Receive Date: 20100730
  Receipt Date: 20080514
  Transmission Date: 20110219
  Serious: No
  Sender: FDA-Public Use
  Company Number: US-PFIZER INC-2008023879

PATIENT
  Sex: Male

DRUGS (5)
  1. LIPITOR [Suspect]
  2. ZETIA [Concomitant]
  3. LISINOPRIL [Concomitant]
  4. NORVASC [Concomitant]
  5. PLAVIX [Concomitant]

REACTIONS (1)
  - MEDICATION RESIDUE [None]
